FAERS Safety Report 12632820 (Version 2)
Quarter: 2016Q3

REPORT INFORMATION
  Report Type: Spontaneous
  Country: US (occurrence: US)
  Receive Date: 20160808
  Receipt Date: 20160808
  Transmission Date: 20161109
  Serious: No
  Sender: FDA-Public Use
  Company Number: US-BEH-2015057094

PATIENT
  Sex: Female
  Weight: 98 kg

DRUGS (31)
  1. HIZENTRA [Suspect]
     Active Substance: HUMAN IMMUNOGLOBULIN G
     Indication: IMMUNODEFICIENCY COMMON VARIABLE
  2. LEVAQUIN [Concomitant]
     Active Substance: LEVOFLOXACIN
  3. PREDNISONE. [Concomitant]
     Active Substance: PREDNISONE
  4. CORTISONE [Concomitant]
     Active Substance: CORTISONE\HYDROCORTISONE
  5. ZYRTEC-D [Concomitant]
     Active Substance: CETIRIZINE HYDROCHLORIDE\PSEUDOEPHEDRINE HYDROCHLORIDE
  6. SINGULAIR [Concomitant]
     Active Substance: MONTELUKAST SODIUM
  7. NEURONTIN [Concomitant]
     Active Substance: GABAPENTIN
  8. LOTREL [Concomitant]
     Active Substance: AMLODIPINE BESYLATE\BENAZEPRIL HYDROCHLORIDE
  9. VITAMIN B [Concomitant]
     Active Substance: VITAMIN B
  10. PROMETHAZINE-DM [Concomitant]
  11. MOBIC [Concomitant]
     Active Substance: MELOXICAM
  12. DIPHENHYDRAMINE. [Concomitant]
     Active Substance: DIPHENHYDRAMINE
  13. CHERATUSSIN AC [Concomitant]
     Active Substance: CODEINE PHOSPHATE\GUAIFENESIN
  14. HYDROCODONE-ACETAMINOPHEN [Concomitant]
     Active Substance: ACETAMINOPHEN\HYDROCODONE
  15. FISH OIL [Concomitant]
     Active Substance: FISH OIL
  16. STOOL SOFTENER [Concomitant]
     Active Substance: DOCUSATE CALCIUM
  17. COQ10 [Concomitant]
     Active Substance: UBIDECARENONE
  18. CRANBERRY. [Concomitant]
     Active Substance: CRANBERRY
  19. ALLEGRA [Concomitant]
     Active Substance: FEXOFENADINE HYDROCHLORIDE
  20. MULTIVITAMIN [Concomitant]
     Active Substance: VITAMINS
  21. PRAVASTATIN. [Concomitant]
     Active Substance: PRAVASTATIN
  22. HYDROCHLOROTHIAZIDE. [Concomitant]
     Active Substance: HYDROCHLOROTHIAZIDE
  23. DIAZEPAM. [Concomitant]
     Active Substance: DIAZEPAM
  24. NEXIUM [Concomitant]
     Active Substance: ESOMEPRAZOLE MAGNESIUM
  25. VITAMIN E [Concomitant]
     Active Substance: .ALPHA.-TOCOPHEROL
  26. XOPENEX [Concomitant]
     Active Substance: LEVALBUTEROL HYDROCHLORIDE
  27. ACETAMINOPHEN. [Concomitant]
     Active Substance: ACETAMINOPHEN
  28. EPIPEN [Concomitant]
     Active Substance: EPINEPHRINE
  29. VENTOLIN [Concomitant]
     Active Substance: ALBUTEROL SULFATE
  30. POTASSIUM GLUC [Concomitant]
  31. ESTRACE [Concomitant]
     Active Substance: ESTRADIOL

REACTIONS (3)
  - Device infusion issue [Recovered/Resolved]
  - Device breakage [Recovered/Resolved]
  - Infusion site pain [Recovered/Resolved]
